FAERS Safety Report 14562265 (Version 2)
Quarter: 2018Q1

REPORT INFORMATION
  Report Type: Report from Study
  Country: US (occurrence: US)
  Receive Date: 20180222
  Receipt Date: 20180327
  Transmission Date: 20180509
  Serious: Yes (Other)
  Sender: FDA-Public Use
  Company Number: US-BAYER-2017-203306

PATIENT
  Age: 45 Year
  Sex: Male
  Weight: 75.74 kg

DRUGS (20)
  1. LAMIVUDINE. [Concomitant]
     Active Substance: LAMIVUDINE
     Dosage: 150 BID
  2. LISINOPRIL. [Concomitant]
     Active Substance: LISINOPRIL
     Dosage: 40 MG, QD
     Route: 048
  3. STIVARGA [Suspect]
     Active Substance: REGORAFENIB
     Indication: COLON CANCER
     Dosage: 160 MG, QD
     Route: 048
     Dates: start: 20170908, end: 201709
  4. OXYCODONE HYDROCHLORIDE. [Concomitant]
     Active Substance: OXYCODONE HYDROCHLORIDE
     Indication: PAIN
     Dosage: 1-2 TABLETS EVERY 3-4 HOURS AS NEEDED
     Route: 048
  5. QUERCETIN [Concomitant]
     Active Substance: QUERCETIN
     Dosage: 500 MG AT MORNING AND 500 MG AT EVENING
  6. PROCHLORPERAZINE MALEATE. [Concomitant]
     Active Substance: PROCHLORPERAZINE MALEATE
     Dosage: 10 MG EVERY 6 HOURS AS NEEDED
     Route: 048
  7. TUMERIC [Concomitant]
     Active Substance: HERBALS\TURMERIC
  8. STIVARGA [Suspect]
     Active Substance: REGORAFENIB
     Indication: COLON CANCER
     Dosage: 160 MG, QD
     Route: 048
     Dates: start: 20170827, end: 20170831
  9. OXYCODONE HYDROCHLORIDE. [Concomitant]
     Active Substance: OXYCODONE HYDROCHLORIDE
     Dosage: 3 TABLETS PER 8 HOURS
     Route: 048
  10. ADVAIR DISKUS [Concomitant]
     Active Substance: FLUTICASONE PROPIONATE\SALMETEROL XINAFOATE
     Dosage: 1 PUFF(S), BID
  11. STIVARGA [Suspect]
     Active Substance: REGORAFENIB
     Indication: COLON CANCER
     Dosage: 80 MG, QD
     Route: 048
     Dates: start: 201709, end: 201709
  12. STIVARGA [Suspect]
     Active Substance: REGORAFENIB
     Indication: COLON CANCER
     Dosage: 40 MG, QD
     Route: 048
     Dates: start: 201709, end: 201709
  13. STIVARGA [Suspect]
     Active Substance: REGORAFENIB
     Indication: COLON CANCER
     Dosage: 40 MG ALTERNATE WITH 80 MG DAILY
     Route: 048
     Dates: start: 20170929, end: 20171003
  14. MODIFIED CITRUSPECTIN [Concomitant]
     Dosage: 15 G, QD
  15. OXYCONTIN [Concomitant]
     Active Substance: OXYCODONE HYDROCHLORIDE
     Route: 048
  16. SENNA PLUS [DOCUSATE SODIUM,SENNOSIDE A+B] [Concomitant]
     Dosage: 4 TABLETS BID
  17. VITAMIN B COMPLEX [Concomitant]
     Active Substance: CYANOCOBALAMIN\DEXPANTHENOL\NIACINAMIDE\PYRIDOXINE HYDROCHLORIDE\RIBOFLAVIN 5^-PHOSPHATE SODIUM\THIAMINE HYDROCHLORIDE\VITAMIN B COMPLEX
     Dosage: UNK UNK, QD
  18. AMLODIPINE BESYLATE. [Concomitant]
     Active Substance: AMLODIPINE BESYLATE
     Dosage: 10 MG, QD
     Route: 048
  19. XANAX [Concomitant]
     Active Substance: ALPRAZOLAM
     Dosage: 1 MG, BID
     Route: 048
  20. DEXAMETHASONE. [Concomitant]
     Active Substance: DEXAMETHASONE
     Dosage: 4 MG AT 8 AM AND 1 PM
     Route: 048

REACTIONS (20)
  - Gastrointestinal disorder [None]
  - Hypertension [None]
  - Ascites [None]
  - Polyneuropathy [None]
  - Thrombocytopenia [None]
  - Drug ineffective [None]
  - Colon cancer [None]
  - Metastases to liver [None]
  - Colon cancer [None]
  - Metastases to lung [None]
  - Palmar-plantar erythrodysaesthesia syndrome [None]
  - Jaundice [None]
  - Hypertension [None]
  - Peripheral swelling [None]
  - Insomnia [None]
  - Constipation [None]
  - Metastases to biliary tract [None]
  - Drug intolerance [None]
  - Abdominal pain [None]
  - Blood pressure decreased [None]

NARRATIVE: CASE EVENT DATE: 201709
